FAERS Safety Report 10218670 (Version 1)
Quarter: 2014Q2

REPORT INFORMATION
  Report Type: Spontaneous
  Country: US (occurrence: US)
  Receive Date: 20140605
  Receipt Date: 20140605
  Transmission Date: 20141212
  Serious: Yes (Hospitalization)
  Sender: FDA-Public Use
  Company Number: US-BAYER-2014-081343

PATIENT
  Age: 26 Year
  Sex: Female
  Weight: 76.19 kg

DRUGS (2)
  1. YASMIN [Suspect]
  2. KEFLEX [Concomitant]
     Dosage: 500 MG, BID

REACTIONS (1)
  - Deep vein thrombosis [Recovered/Resolved]
